FAERS Safety Report 5363516-X (Version None)
Quarter: 2007Q2

REPORT INFORMATION
  Report Type: 
  Country: None (occurrence: None)
  Receive Date: 20070620
  Receipt Date: 20060505
  Transmission Date: 20071010
  Serious: No
  Sender: FDA-Public Use
  Company Number: US-BRISTOL-MYERS SQUIBB COMPANY-13369715

PATIENT
  Sex: Female

DRUGS (2)
  1. MONOPRIL [Suspect]
  2. ACCUPRIL [Suspect]

REACTIONS (1)
  - COUGH [None]
